FAERS Safety Report 15967816 (Version 4)
Quarter: 2019Q1

REPORT INFORMATION
  Report Type: Report from Study
  Country: JP (occurrence: JP)
  Receive Date: 20190215
  Receipt Date: 20190319
  Transmission Date: 20190418
  Serious: Yes (Hospitalization)
  Sender: FDA-Public Use
  Company Number: JP-PFIZER INC-2019056611

PATIENT
  Age: 75 Year
  Sex: Male
  Weight: 61.3 kg

DRUGS (26)
  1. AVELUMAB [Suspect]
     Active Substance: AVELUMAB
     Dosage: 575 MG, EVERY 2 WEEKS
     Route: 042
     Dates: start: 20180910, end: 20190128
  2. NEXIUM [Concomitant]
     Active Substance: ESOMEPRAZOLE MAGNESIUM
     Indication: PROPHYLAXIS
     Dosage: 10 MG, 1X/DAY
     Route: 048
     Dates: start: 20180821
  3. CORTRIL [HYDROCORTISONE] [Concomitant]
     Indication: ADRENAL INSUFFICIENCY
     Dosage: 15 MG, DAILY (10 MG AM, 5 MG PM)
     Route: 048
     Dates: start: 20180821
  4. RESTAMIN KOWA [Concomitant]
     Indication: PREMEDICATION
     Dosage: 30 MG, SINGLE (ONCE)
     Route: 048
     Dates: start: 20190128, end: 20190128
  5. BAYASPIRIN [Suspect]
     Active Substance: ASPIRIN
     Indication: PROPHYLAXIS
     Dosage: 100 MG, QD
     Route: 048
     Dates: start: 20180824, end: 20190204
  6. MIYA-BM [Concomitant]
     Active Substance: CLOSTRIDIUM BUTYRICUM SPORES STRAIN M-55
     Indication: PROPHYLAXIS AGAINST DIARRHOEA
     Dosage: 1 DF, 3X/DAY
     Route: 048
     Dates: start: 20180910
  7. ROSUVASTATIN. [Concomitant]
     Active Substance: ROSUVASTATIN
     Indication: DYSLIPIDAEMIA
     Dosage: 2.5 MG, 1X/DAY
     Route: 048
     Dates: start: 20180821
  8. MYSER [DIFLUPREDNATE] [Concomitant]
     Indication: PALMAR-PLANTAR ERYTHRODYSAESTHESIA SYNDROME
     Dosage: 1 APPLICATION AS NEEDED
     Route: 062
  9. AVELUMAB [Suspect]
     Active Substance: AVELUMAB
     Dosage: 575 MG, EVERY 2 WEEKS
     Route: 042
     Dates: start: 20180604, end: 20180814
  10. LEVOTHYROXINE NA [Concomitant]
     Active Substance: LEVOTHYROXINE SODIUM
     Indication: HYPOTHYROIDISM
     Dosage: 100 UG, 1X/DAY
     Route: 048
     Dates: start: 20180821
  11. KERATINAMIN [Concomitant]
     Active Substance: UREA
     Indication: PALMAR-PLANTAR ERYTHRODYSAESTHESIA SYNDROME
     Dosage: 1 APPLICATION AS NEEDED
     Route: 062
  12. PROMAC D [Concomitant]
     Active Substance: POLAPREZINC
     Indication: DYSGEUSIA
     Dosage: 75 MG, 2X/DAY
     Route: 048
     Dates: start: 20180910
  13. COCARL [Concomitant]
     Active Substance: ACETAMINOPHEN
     Indication: PREMEDICATION
     Dosage: 600 MG, SINGLE (ONCE)
     Route: 048
     Dates: start: 20190128, end: 20190128
  14. AVELUMAB [Suspect]
     Active Substance: AVELUMAB
     Indication: HEPATOCELLULAR CARCINOMA
     Dosage: 664 MG, CYCLIC
     Dates: start: 20171120
  15. THYRADIN-S [Concomitant]
     Active Substance: LEVOTHYROXINE
     Indication: HYPOTHYROIDISM
     Dosage: 12.5 UG, 1X/DAY
     Route: 048
     Dates: start: 20190121
  16. OLMETEC [Concomitant]
     Active Substance: OLMESARTAN MEDOXOMIL
     Indication: HYPERTENSION
     Dosage: 40 MG, 1X/DAY
     Route: 048
     Dates: start: 20181029
  17. ISOSORBIDE MONONITRATE. [Concomitant]
     Active Substance: ISOSORBIDE MONONITRATE
     Indication: ANGINA PECTORIS
     Dosage: 20 MG, 2X/DAY
     Route: 048
     Dates: start: 20180821
  18. URIEF [Concomitant]
     Active Substance: SILODOSIN
     Indication: BENIGN PROSTATIC HYPERPLASIA
     Dosage: 4 MG, 2X/DAY
     Route: 048
     Dates: start: 20180824
  19. NOVORAPID [Concomitant]
     Active Substance: INSULIN ASPART
     Indication: DIABETES MELLITUS
     Dosage: 1 APPLICATION AS NEEDED
     Route: 058
     Dates: start: 20180604
  20. AXITINIB [Suspect]
     Active Substance: AXITINIB
     Indication: HEPATOCELLULAR CARCINOMA
     Dosage: 5 MG, 2X/DAY
     Dates: start: 20171120
  21. AXITINIB [Suspect]
     Active Substance: AXITINIB
     Dosage: 3 MG, 2X/DAY (TWICE DAILY CONTINUOUS)
     Route: 048
     Dates: start: 20180403, end: 20190203
  22. METHYCOBAL [Concomitant]
     Active Substance: METHYLCOBALAMIN
     Indication: PALMAR-PLANTAR ERYTHRODYSAESTHESIA SYNDROME
     Dosage: 500 UG, 3X/DAY
     Route: 048
     Dates: start: 20181119
  23. URSO [Concomitant]
     Active Substance: URSODIOL
     Indication: HEPATIC ENZYME INCREASED
     Dosage: 200 MG, 3X/DAY
     Route: 048
     Dates: start: 20180824
  24. NORVASC [Concomitant]
     Active Substance: AMLODIPINE BESYLATE
     Indication: HYPERTENSION
     Dosage: 5 MG, 2X/DAY
     Route: 048
     Dates: start: 20181029
  25. ACINON [NIZATIDINE] [Concomitant]
     Indication: DYSGEUSIA
     Dosage: 150 MG, 2X/DAY
     Route: 048
     Dates: start: 20180828
  26. AMINOLEBAN EN [Concomitant]
     Active Substance: UNSPECIFIED INGREDIENT
     Indication: NUTRITIONAL SUPPLEMENTATION
     Dosage: 50 G, 2X/DAY(1 PACKAGE)
     Route: 048
     Dates: start: 20181203

REACTIONS (1)
  - Diverticulum intestinal haemorrhagic [Recovered/Resolved]

NARRATIVE: CASE EVENT DATE: 20190204
